FAERS Safety Report 7760378-8 (Version None)
Quarter: 2011Q3

REPORT INFORMATION
  Report Type: 
  Country: None (occurrence: None)
  Receive Date: 20110919
  Receipt Date: 20110912
  Transmission Date: 20111222
  Serious: Yes (Other)
  Sender: FDA-Public Use
  Company Number: PHHY2011CA70795

PATIENT
  Sex: Female

DRUGS (1)
  1. SANDOSTATIN LAR [Suspect]
     Indication: ACROMEGALY
     Dosage: 20 MG, EVERY 4 WEEKS
     Route: 030
     Dates: start: 19991001

REACTIONS (12)
  - MUSCULOSKELETAL DISCOMFORT [None]
  - NAUSEA [None]
  - WHITE BLOOD CELL COUNT INCREASED [None]
  - VOMITING [None]
  - HAEMATEMESIS [None]
  - ABDOMINAL PAIN [None]
  - ABDOMINAL DISCOMFORT [None]
  - MEMORY IMPAIRMENT [None]
  - DIVERTICULITIS [None]
  - RECTAL HAEMORRHAGE [None]
  - PYREXIA [None]
  - DIARRHOEA [None]
